FAERS Safety Report 23466003 (Version 3)
Quarter: 2024Q3

REPORT INFORMATION
  Report Type: Spontaneous
  Country: CA (occurrence: CA)
  Receive Date: 20240201
  Receipt Date: 20240927
  Transmission Date: 20241017
  Serious: Yes (Other)
  Sender: PFIZER
  Company Number: CA-PFIZER INC-202400009605

PATIENT
  Age: 84 Year
  Sex: Female
  Weight: 92 kg

DRUGS (17)
  1. RUXIENCE [Suspect]
     Active Substance: RITUXIMAB-PVVR
     Indication: Rheumatoid arthritis
     Dosage: 1000 MG, DAY 1 AND DAY 15
     Route: 042
     Dates: start: 20211221, end: 20220104
  2. RUXIENCE [Suspect]
     Active Substance: RITUXIMAB-PVVR
     Dosage: 1000 MG, RETREATMENT- DAY 1 AND DAY 15
     Route: 042
     Dates: start: 20220622, end: 20220707
  3. RUXIENCE [Suspect]
     Active Substance: RITUXIMAB-PVVR
     Dosage: 1000 MG, DAY 1 AND DAY 15
     Route: 042
     Dates: start: 20230112, end: 20230126
  4. RUXIENCE [Suspect]
     Active Substance: RITUXIMAB-PVVR
     Dosage: 1000 MG, DAY 1 AND DAY 15
     Route: 042
     Dates: start: 20230713, end: 20230727
  5. RUXIENCE [Suspect]
     Active Substance: RITUXIMAB-PVVR
     Dosage: 1000 MG, DAY 1 AND DAY 15
     Route: 042
     Dates: start: 20230727
  6. RUXIENCE [Suspect]
     Active Substance: RITUXIMAB-PVVR
     Dosage: 1000 MG, DAY 1 AND DAY 15 (DOSAGE ADMINISTERED: 1000 MG, 27 WEEKS)
     Route: 042
     Dates: start: 20240129
  7. RUXIENCE [Suspect]
     Active Substance: RITUXIMAB-PVVR
     Dosage: 1000 MG, DAY 1 AND DAY 15 (DOSAGE ADMINISTERED: 1000 MG, 27 WEEKS)
     Route: 042
     Dates: start: 20240212
  8. ARAVA [Concomitant]
     Active Substance: LEFLUNOMIDE
     Dosage: UNK
  9. APIXABAN [Concomitant]
     Active Substance: APIXABAN
     Dosage: UNK
  10. NIFEDIPINE [Concomitant]
     Active Substance: NIFEDIPINE
     Dosage: UNK
  11. BUPROPION [Concomitant]
     Active Substance: BUPROPION
     Dosage: UNK
  12. CITALOPRAM [Concomitant]
     Active Substance: CITALOPRAM
     Dosage: UNK
  13. IRON [Concomitant]
     Active Substance: IRON
     Dosage: UNK
  14. LASIX [Concomitant]
     Active Substance: FUROSEMIDE
     Dosage: UNK
  15. MYRBETRIQ [Concomitant]
     Active Substance: MIRABEGRON
     Dosage: UNK
  16. SYNTHROID [Concomitant]
     Active Substance: LEVOTHYROXINE SODIUM
     Dosage: UNK
  17. SPIRONOLACTONE [Concomitant]
     Active Substance: SPIRONOLACTONE
     Dosage: UNK

REACTIONS (8)
  - Decubitus ulcer [Recovering/Resolving]
  - Pseudomonas infection [Unknown]
  - Skin ulcer [Unknown]
  - Impaired healing [Unknown]
  - Wound drainage [Unknown]
  - Joint swelling [Unknown]
  - Arthralgia [Unknown]
  - Inappropriate schedule of product administration [Unknown]

NARRATIVE: CASE EVENT DATE: 20240101
